FAERS Safety Report 8166142-2 (Version None)
Quarter: 2012Q1

REPORT INFORMATION
  Report Type: 
  Country: None (occurrence: None)
  Receive Date: 20120227
  Receipt Date: 20110331
  Transmission Date: 20120608
  Serious: No
  Sender: FDA-Public Use
  Company Number: US-MYLANLABS-2011S1006986

PATIENT
  Age: 16 Year
  Sex: Female

DRUGS (3)
  1. OMEPRAZOLE [Concomitant]
     Route: 048
  2. DROSPIRENONE AND ETHINYL ESTRADIOL [Concomitant]
     Indication: ORAL CONTRACEPTION
     Route: 048
  3. AMNESTEEM [Suspect]
     Indication: ACNE
     Route: 048
     Dates: start: 20110105, end: 20110324

REACTIONS (2)
  - RASH [None]
  - MOOD ALTERED [None]
